FAERS Safety Report 18462476 (Version 1)
Quarter: 2020Q4

REPORT INFORMATION
  Report Type: Spontaneous
  Country: US (occurrence: US)
  Receive Date: 20201103
  Receipt Date: 20201103
  Transmission Date: 20210114
  Serious: Yes (Other)
  Sender: FDA-Public Use
  Company Number: None

PATIENT
  Age: 69 Year
  Sex: Female
  Weight: 85.5 kg

DRUGS (11)
  1. GLUCOMETER [Concomitant]
  2. LIPITOR [Concomitant]
     Active Substance: ATORVASTATIN CALCIUM
  3. MULTIVITAMIN [Concomitant]
     Active Substance: VITAMINS
  4. ASPIRIN 81MG [Concomitant]
     Active Substance: ASPIRIN
  5. BENICAR/HCTZ40 [Concomitant]
  6. VITAMIN D [Concomitant]
     Active Substance: VITAMIN D NOS
  7. LANCET DEVICE [Concomitant]
  8. TOPROL XL [Concomitant]
     Active Substance: METOPROLOL SUCCINATE
  9. NORTRIPTYLINE 25MG [Concomitant]
  10. METFORMIN HCL ER 750MG TB24 [Suspect]
     Active Substance: METFORMIN HYDROCHLORIDE
     Indication: TYPE 2 DIABETES MELLITUS
     Dosage: ?          QUANTITY:2 TABLET(S);?
     Route: 048
     Dates: start: 20190701, end: 20201103
  11. JARDIANCE [Concomitant]
     Active Substance: EMPAGLIFLOZIN

REACTIONS (1)
  - Breast mass [None]

NARRATIVE: CASE EVENT DATE: 20200914
